FAERS Safety Report 23197892 (Version 2)
Quarter: 2024Q1

REPORT INFORMATION
  Report Type: Spontaneous
  Country: JP (occurrence: JP)
  Receive Date: 20231117
  Receipt Date: 20240122
  Transmission Date: 20240410
  Serious: Yes (Hospitalization, Other)
  Sender: FDA-Public Use
  Company Number: JP-AMGEN-JPNSP2023201921

PATIENT
  Age: 16 Year
  Sex: Male

DRUGS (3)
  1. BLINCYTO [Suspect]
     Active Substance: BLINATUMOMAB
     Indication: B precursor type acute leukaemia
     Dosage: 9.28 MICROGRAM, CONTINUING 24 DIV, CENTRAL VENOUS
     Route: 042
     Dates: start: 20230815, end: 2023
  2. BLINCYTO [Suspect]
     Active Substance: BLINATUMOMAB
     Dosage: 9.28 MICROGRAM, CONTINUING 24 DIV, CENTRAL VENOUS
     Route: 042
     Dates: start: 2023, end: 20231024
  3. CYTARABINE [Suspect]
     Active Substance: CYTARABINE
     Indication: Product used for unknown indication
     Dosage: UNK
     Route: 065

REACTIONS (4)
  - Myelosuppression [Recovered/Resolved]
  - Graft versus host disease [Recovered/Resolved]
  - Bacteraemia [Recovered/Resolved]
  - Oedema [Recovered/Resolved]

NARRATIVE: CASE EVENT DATE: 20230101
